FAERS Safety Report 5434463-X (Version None)
Quarter: 2007Q3

REPORT INFORMATION
  Report Type: 
  Country: None (occurrence: None)
  Receive Date: 20070831
  Receipt Date: 20070710
  Transmission Date: 20080115
  Serious: No
  Sender: FDA-Public Use
  Company Number: A0662342A

PATIENT
  Age: 65 Year
  Sex: Female

DRUGS (1)
  1. ALLI [Suspect]

REACTIONS (3)
  - PHARYNGOLARYNGEAL PAIN [None]
  - STOMATITIS [None]
  - TONGUE DISORDER [None]
